FAERS Safety Report 5237338-4 (Version None)
Quarter: 2007Q1

REPORT INFORMATION
  Report Type: 
  Country: None (occurrence: None)
  Receive Date: 20070213
  Receipt Date: 20070130
  Transmission Date: 20070707
  Serious: Yes (Death, Other)
  Sender: FDA-Public Use
  Company Number: US-ELI_LILLY_AND_COMPANY-US200701006077

PATIENT
  Age: 46 Year
  Sex: Female

DRUGS (17)
  1. PROZAC [Suspect]
     Indication: DEPRESSION
     Dosage: 40 MG, 2/D
  2. TRAZODONE HCL [Concomitant]
     Indication: DEPRESSION
     Dosage: 50 MEQ, EACH EVENING
  3. SEROQUEL [Concomitant]
     Indication: DEPRESSION
     Dosage: 400 MG, EACH EVENING
  4. ALBUTEROL SULATE [Concomitant]
     Indication: ASTHMA
     Dosage: UNK UNK, AS NEEDED
  5. ADVAIR DISKUS 100/50 [Concomitant]
     Indication: ASTHMA
     Dosage: UNK UNK, 2/D
  6. LOPRESSOR [Concomitant]
     Indication: BLOOD PRESSURE
     Dosage: 50 MG, 2/D
  7. SYNTHROID [Concomitant]
     Indication: THYROID DISORDER
     Dosage: 125 UG, DAILY (1/D)
  8. PREVACID [Concomitant]
     Indication: GASTROOESOPHAGEAL REFLUX DISEASE
     Dosage: 30 MG, DAILY (1/D)
  9. KLONOPIN [Concomitant]
     Dosage: 1 MG, 2/D
  10. ABILIFY [Concomitant]
     Indication: SCHIZOAFFECTIVE DISORDER
     Dosage: 20 MEQ, DAILY (1/D)
  11. SOMA [Concomitant]
     Indication: PAIN
     Dosage: 350 MG, 3/D
  12. MOBIC [Concomitant]
     Indication: PAIN
     Dosage: 15 MEQ, EACH EVENING
  13. SINGULAIR [Concomitant]
     Indication: ASTHMA
     Dosage: 10 MEQ, EACH EVENING
  14. DETROL [Concomitant]
     Dosage: 4 MG, DAILY (1/D)
  15. LIDOCAINE [Concomitant]
     Indication: PAIN
     Dosage: UNK UNK, OTHER
  16. DURAGESIC-100 [Concomitant]
     Indication: PAIN
     Dosage: UNK UNK, OTHER
  17. MAXALT /USA/ [Concomitant]
     Indication: MIGRAINE
     Dosage: 10 MG, AS NEEDED

REACTIONS (7)
  - BRONCHITIS [None]
  - COMPLETED SUICIDE [None]
  - CONGESTIVE CARDIOMYOPATHY [None]
  - DIABETES MELLITUS [None]
  - DRUG TOXICITY [None]
  - MALAISE [None]
  - PULMONARY OEDEMA [None]
